FAERS Safety Report 7578459-0 (Version None)
Quarter: 2011Q2

REPORT INFORMATION
  Report Type: 
  Country: None (occurrence: None)
  Receive Date: 20110622
  Receipt Date: 20110608
  Transmission Date: 20111010
  Serious: Yes (Hospitalization)
  Sender: FDA-Public Use
  Company Number: DSJ-2011-10814

PATIENT
  Age: 81 Year
  Sex: Female
  Weight: 53 kg

DRUGS (6)
  1. OLMETEC (OLMESARTAN MEDOXOMIL) (TABLET) (OLMESARTAN MEDOXOMIL) [Suspect]
     Indication: HYPERTENSION
     Dosage: 40  MG, PER ORAL
     Route: 048
     Dates: start: 20100501
  2. BONALON (ALENDRONATE SODIUM) [Concomitant]
  3. VIT K CAP [Concomitant]
  4. EPHEDRA TEAS (EPHEDRA SPP.) (EPHEDRA SPP.) [Suspect]
     Indication: PRODUCT USED FOR UNKNOWN INDICATION
     Dosage: 3 DOSAGE FORMS (1 DOSAGE FORMS, 3 IN 1 D)
  5. ANASTROZOLE [Suspect]
     Indication: BREAST CANCER
     Dosage: 1 MG (1 MG, 1 IN 1 D), PER ORAL
     Route: 048
     Dates: start: 20090214, end: 20110601
  6. ONEALFA (ALFACALCIDOL) [Concomitant]

REACTIONS (2)
  - INTERSTITIAL LUNG DISEASE [None]
  - LYMPHOCYTE STIMULATION TEST POSITIVE [None]
